FAERS Safety Report 6310317-1 (Version None)
Quarter: 2009Q3

REPORT INFORMATION
  Report Type: 
  Country: None (occurrence: None)
  Receive Date: 20090814
  Receipt Date: 20090804
  Transmission Date: 20100115
  Serious: Yes (Death, Other)
  Sender: FDA-Public Use
  Company Number: US-ROCHE-648705

PATIENT
  Age: 63 Year
  Sex: Male

DRUGS (7)
  1. MYCOPHENOLATE MOFETIL [Suspect]
     Route: 065
  2. FLUDARABINE PHOSPHATE [Suspect]
     Indication: PERIPHERAL T-CELL LYMPHOMA UNSPECIFIED REFRACTORY
     Route: 065
  3. ALEMTUZUMAB [Suspect]
     Indication: PERIPHERAL T-CELL LYMPHOMA UNSPECIFIED REFRACTORY
     Route: 065
  4. MELPHALAN HYDROCHLORIDE [Suspect]
     Indication: PERIPHERAL T-CELL LYMPHOMA UNSPECIFIED REFRACTORY
     Route: 065
  5. TACROLIMUS [Suspect]
     Route: 065
  6. POSACONAZOLE [Suspect]
     Indication: PROPHYLAXIS
     Dosage: TAKEN WITH FOOD
     Route: 048
  7. INFLIXIMAB [Suspect]
     Indication: GRAFT VERSUS HOST DISEASE
     Dosage: INDICATION: GRADE III SKIN AND GASTROINTESTINAL GVHD
     Route: 065

REACTIONS (9)
  - BACTERIAL INFECTION [None]
  - BK VIRUS INFECTION [None]
  - CHRONIC GRAFT VERSUS HOST DISEASE [None]
  - CYTOMEGALOVIRUS INFECTION [None]
  - LOWER RESPIRATORY TRACT INFECTION FUNGAL [None]
  - MYCOBACTERIUM FORTUITUM INFECTION [None]
  - PARAINFLUENZAE VIRUS INFECTION [None]
  - RESPIRATORY DISTRESS [None]
  - STRONGYLOIDIASIS [None]
